FAERS Safety Report 9460151 (Version 3)
Quarter: 2013Q3

REPORT INFORMATION
  Report Type: Spontaneous
  Country: US (occurrence: US)
  Receive Date: 20130815
  Receipt Date: 20130916
  Transmission Date: 20140515
  Serious: No
  Sender: FDA-Public Use
  Company Number: US-009507513-1308USA005617

PATIENT
  Age: 68 Year
  Sex: Female

DRUGS (12)
  1. DULERA [Suspect]
     Indication: CHRONIC OBSTRUCTIVE PULMONARY DISEASE
     Dosage: 2 PUFFS TWICE DAILY
     Route: 055
     Dates: start: 20130625, end: 20130630
  2. DULERA [Suspect]
     Dosage: PUFFS 2X DAILY, 06/13-2
     Route: 055
     Dates: start: 20130710
  3. PREDNISONE [Concomitant]
  4. SPIRIVA [Concomitant]
  5. ESTRADIOL [Concomitant]
  6. ATIVAN [Concomitant]
  7. NEXIUM [Concomitant]
  8. TYLENOL [Concomitant]
  9. ALLEGRA [Concomitant]
  10. BENADRYL [Concomitant]
  11. CIPRO [Concomitant]
  12. ADVAIR [Concomitant]
     Dosage: UNK

REACTIONS (5)
  - Blood glucose increased [Not Recovered/Not Resolved]
  - Blood potassium increased [Not Recovered/Not Resolved]
  - Blood glucose fluctuation [Not Recovered/Not Resolved]
  - Adverse event [Unknown]
  - Palpitations [Unknown]
